FAERS Safety Report 5877348-7 (Version None)
Quarter: 2008Q3

REPORT INFORMATION
  Report Type: 
  Country: None (occurrence: None)
  Receive Date: 20080908
  Receipt Date: 20080825
  Transmission Date: 20090109
  Serious: Yes (Hospitalization, Other)
  Sender: FDA-Public Use
  Company Number: 230040M08DEU

PATIENT
  Sex: Female

DRUGS (1)
  1. REBIF (INTERFERON BETA) [Suspect]

REACTIONS (1)
  - VASCULAR GRAFT [None]
